FAERS Safety Report 5679842-0 (Version None)
Quarter: 2008Q1

REPORT INFORMATION
  Report Type: 
  Country: None (occurrence: None)
  Receive Date: 20080321
  Receipt Date: 20071001
  Transmission Date: 20080703
  Serious: Yes (Hospitalization)
  Sender: FDA-Public Use
  Company Number: NL01PV07.05394

PATIENT
  Age: 89 Year
  Sex: Female

DRUGS (8)
  1. PAROXETINE (PAROXETINE) UNKNOWN [Suspect]
     Dosage: 20 MG, QD
     Route: 048
     Dates: start: 20040101, end: 20070322
  2. ALDACTAZINE (ALTIZIDE, SPIRONOLACTONE) [Suspect]
     Dates: start: 20060401, end: 20070322
  3. ZOLPIDEM (ZOLPIDEM) TABLET [Concomitant]
  4. OMEPRAZOLE [Concomitant]
  5. FONZYLANE (BUFLOMEDIL HYDROCHLORIDE) [Concomitant]
  6. ARICEPT [Concomitant]
  7. OROCAL (CALCIUM CARBONATE) [Concomitant]
  8. ACTONEL [Concomitant]

REACTIONS (2)
  - CONFUSIONAL STATE [None]
  - HYPONATRAEMIA [None]
